FAERS Safety Report 24140463 (Version 1)
Quarter: 2024Q3

REPORT INFORMATION
  Report Type: Report from Study
  Country: CA (occurrence: None)
  Receive Date: 20240726
  Receipt Date: 20240726
  Transmission Date: 20241017
  Serious: Yes (Hospitalization)
  Sender: ASTRAZENECA
  Company Number: 2021A365131

PATIENT
  Sex: Male

DRUGS (2)
  1. CALQUENCE [Suspect]
     Active Substance: ACALABRUTINIB
     Indication: Chronic lymphocytic leukaemia
     Route: 048
     Dates: start: 20200312
  2. IMBRUVICA [Concomitant]
     Active Substance: IBRUTINIB
     Route: 065
     Dates: start: 20190618

REACTIONS (2)
  - Aortitis [Unknown]
  - General physical health deterioration [Unknown]
